FAERS Safety Report 14430819 (Version 1)
Quarter: 2018Q1

REPORT INFORMATION
  Report Type: Report from Study
  Country: DE (occurrence: DE)
  Receive Date: 20180124
  Receipt Date: 20180124
  Transmission Date: 20180509
  Serious: Yes (Life-Threatening)
  Sender: FDA-Public Use
  Company Number: DE-BAXTER-2018BAX002600

PATIENT
  Age: 52 Year
  Sex: Male

DRUGS (5)
  1. ETHOMIDATE [Suspect]
     Active Substance: ETOMIDATE
     Indication: GENERAL ANAESTHESIA
     Route: 065
  2. FENTANYL. [Suspect]
     Active Substance: FENTANYL
     Indication: GENERAL ANAESTHESIA
     Route: 065
  3. ISOFLURAN BAXTER [Suspect]
     Active Substance: ISOFLURANE
     Indication: GENERAL ANAESTHESIA
     Route: 055
  4. BUPIVACAIN-CLARIS 5 MG/ML INJEKTIONSL?SUNG [Suspect]
     Active Substance: BUPIVACAINE HYDROCHLORIDE
     Indication: GENERAL ANAESTHESIA
     Route: 065
  5. PANCURONIUM BROMIDE. [Suspect]
     Active Substance: PANCURONIUM BROMIDE
     Indication: GENERAL ANAESTHESIA
     Route: 065

REACTIONS (12)
  - Oxygen saturation decreased [None]
  - Platelet count decreased [None]
  - Hyperthermia [Recovered/Resolved]
  - Blood pressure decreased [None]
  - Muscular weakness [None]
  - Lymphocyte count decreased [None]
  - Coma [Recovered/Resolved]
  - Renal failure [Recovered/Resolved]
  - Blood creatine phosphokinase increased [Recovered/Resolved]
  - Tachycardia [None]
  - Myoglobin blood increased [None]
  - Multiple organ dysfunction syndrome [Recovered/Resolved]
